FAERS Safety Report 9268272 (Version 1)
Quarter: 2013Q2

REPORT INFORMATION
  Report Type: Spontaneous
  Country: US (occurrence: US)
  Receive Date: 20130502
  Receipt Date: 20130502
  Transmission Date: 20140414
  Serious: Yes (Hospitalization)
  Sender: FDA-Public Use
  Company Number: US-ELI_LILLY_AND_COMPANY-US201207000671

PATIENT
  Age: 83 Year
  Sex: Female

DRUGS (1)
  1. FORTEO [Suspect]
     Dosage: UNK, QD
     Dates: end: 20130326

REACTIONS (4)
  - Spinal compression fracture [Unknown]
  - Fall [Unknown]
  - Incorrect storage of drug [Unknown]
  - Rash generalised [Unknown]
